FAERS Safety Report 4416748-9 (Version None)
Quarter: 2004Q3

REPORT INFORMATION
  Report Type: 
  Country: None (occurrence: None)
  Receive Date: 20040802
  Receipt Date: 20040715
  Transmission Date: 20050211
  Serious: Yes (Hospitalization)
  Sender: FDA-Public Use
  Company Number: 28928

PATIENT
  Age: 14 Year
  Sex: Female

DRUGS (2)
  1. BRINZOLAMIDE 1% SUSPENSION [Suspect]
     Route: 047
     Dates: start: 20040129
  2. ACETAMINOPHEN [Concomitant]

REACTIONS (5)
  - ABDOMINAL DISCOMFORT [None]
  - CIRCULATORY COLLAPSE [None]
  - DIZZINESS [None]
  - HEADACHE [None]
  - LOSS OF CONSCIOUSNESS [None]
